FAERS Safety Report 11134321 (Version 1)
Quarter: 2015Q2

REPORT INFORMATION
  Report Type: Spontaneous
  Country: FR (occurrence: FR)
  Receive Date: 20150525
  Receipt Date: 20150525
  Transmission Date: 20150821
  Serious: Yes (Life-Threatening)
  Sender: FDA-Public Use
  Company Number: FR-ROCHE-1580754

PATIENT
  Age: 64 Year
  Sex: Male

DRUGS (19)
  1. RIFAMPICINE [Interacting]
     Active Substance: RIFAMPIN
     Indication: PRODUCT USED FOR UNKNOWN INDICATION
     Route: 048
     Dates: start: 20140730
  2. BACTRIM [Concomitant]
     Active Substance: SULFAMETHOXAZOLE\TRIMETHOPRIM
     Dosage: ON MONDAYS, WEDNESDAYS AND FRIDAYS
     Route: 048
  3. LEVOTHYROX [Concomitant]
     Active Substance: LEVOTHYROXINE
     Dosage: ON MORNINGS
     Route: 048
  4. DAFALGAN [Concomitant]
     Active Substance: ACETAMINOPHEN
     Route: 048
  5. RIMIFON [Interacting]
     Active Substance: ISONIAZID
     Indication: PRODUCT USED FOR UNKNOWN INDICATION
     Route: 048
     Dates: start: 20140728
  6. CORTANCYL [Concomitant]
     Active Substance: PREDNISONE
     Dosage: ON MORNINGS
     Route: 048
  7. LEDERFOLINE [Concomitant]
     Active Substance: LEUCOVORIN CALCIUM
     Dosage: ON TUESDAYS, THURSDAYS AND SATURDAYS
     Route: 048
  8. LANTUS SOLOSTAR [Concomitant]
     Active Substance: INSULIN GLARGINE
     Dosage: ON EVENINGS
     Route: 065
  9. CELLCEPT [Suspect]
     Active Substance: MYCOPHENOLATE MOFETIL\MYCOPHENOLATE MOFETIL HYDROCHLORIDE
     Indication: TRANSPLANT
     Dosage: 1 ON MORNINGS, 1 ON EVENINGS
     Route: 048
  10. NOVORAPID [Concomitant]
     Active Substance: INSULIN ASPART
     Dosage: 12 IU ON MORNINGS,12 IU AT MIDDAY,6 IU ON EVENINGS
     Route: 065
  11. VFEND [Concomitant]
     Active Substance: VORICONAZOLE
     Route: 048
  12. KARDEGIC [Concomitant]
     Active Substance: ASPIRIN LYSINE
     Dosage: ON MORNINGS
     Route: 048
  13. ADENURIC [Concomitant]
     Active Substance: FEBUXOSTAT
     Dosage: ON MORNINGS
     Route: 048
  14. MECIR [Concomitant]
     Active Substance: TAMSULOSIN HYDROCHLORIDE
     Dosage: ON EVENINGS
     Route: 048
  15. COLCHIMAX (FRANCE) [Concomitant]
     Route: 048
  16. TAHOR [Concomitant]
     Active Substance: ATORVASTATIN CALCIUM
     Dosage: ON MORNINGS
     Route: 048
  17. INEXIUM [Concomitant]
     Active Substance: ESOMEPRAZOLE
     Dosage: ON EVENINGS
     Route: 048
  18. ATARAX [Concomitant]
     Active Substance: HYDROXYZINE\HYDROXYZINE HYDROCHLORIDE
     Dosage: ON EVENINGS
     Route: 048
  19. ADVAGRAF [Interacting]
     Active Substance: TACROLIMUS
     Indication: PRODUCT USED FOR UNKNOWN INDICATION
     Dosage: ON MORNINGS
     Route: 048

REACTIONS (3)
  - Drug interaction [Unknown]
  - Renal failure [Recovered/Resolved]
  - Transplant rejection [Recovered/Resolved]

NARRATIVE: CASE EVENT DATE: 20140728
